FAERS Safety Report 11661294 (Version 3)
Quarter: 2016Q2

REPORT INFORMATION
  Report Type: Spontaneous
  Country: US (occurrence: US)
  Receive Date: 20151026
  Receipt Date: 20160406
  Transmission Date: 20160815
  Serious: Yes (Other)
  Sender: FDA-Public Use
  Company Number: ADR-2015-00479

PATIENT
  Age: 69 Year
  Sex: Female

DRUGS (5)
  1. LIORESAL [Suspect]
     Active Substance: BACLOFEN
     Indication: MUSCLE SPASTICITY
     Dosage: 122MCG/DAY
     Route: 037
     Dates: start: 20150303
  2. LIORESAL [Suspect]
     Active Substance: BACLOFEN
     Indication: MUSCLE SPASTICITY
     Dosage: 127MCG/DAY
     Route: 037
     Dates: start: 20151020
  3. ORAL MEDICATIONS [Suspect]
     Active Substance: UNSPECIFIED INGREDIENT
     Route: 048
  4. LIORESAL [Suspect]
     Active Substance: BACLOFEN
     Indication: MUSCLE SPASTICITY
     Dosage: 110 TO 122MCG/DAY
     Route: 037
     Dates: start: 20141222, end: 20150303
  5. LIORESAL [Suspect]
     Active Substance: BACLOFEN
     Indication: MUSCLE SPASTICITY
     Dosage: 110 TO 122MCG/DAY
     Route: 037
     Dates: start: 20140930, end: 20141222

REACTIONS (5)
  - Multimorbidity [Unknown]
  - Peptic ulcer [Recovered/Resolved]
  - Somnolence [Recovered/Resolved]
  - Overdose [Recovered/Resolved]
  - Hypotonia [Recovered/Resolved]
